FAERS Safety Report 5131614-1 (Version None)
Quarter: 2006Q4

REPORT INFORMATION
  Report Type: 
  Country: None (occurrence: None)
  Receive Date: 20061020
  Receipt Date: 20061002
  Transmission Date: 20070319
  Serious: Yes (Other)
  Sender: FDA-Public Use
  Company Number: JP-SANOFI-SYNTHELABO-A01200608271

PATIENT
  Age: 161 Month
  Sex: Male
  Weight: 60 kg

DRUGS (1)
  1. ZOLPIDEM TARTRATE [Suspect]
     Indication: INSOMNIA
     Route: 048
     Dates: start: 20060913, end: 20060913

REACTIONS (3)
  - AGITATION [None]
  - DELIRIUM [None]
  - DIZZINESS [None]
